FAERS Safety Report 22059328 (Version 1)
Quarter: 2023Q1

REPORT INFORMATION
  Report Type: Spontaneous
  Country: US (occurrence: None)
  Receive Date: 20230302
  Receipt Date: 20230302
  Transmission Date: 20230418
  Serious: Yes (Life-Threatening, Hospitalization)
  Sender: FDA-Public Use
  Company Number: None

PATIENT
  Age: 17 Year
  Sex: Female
  Weight: 61.23 kg

DRUGS (1)
  1. STELARA [Suspect]
     Active Substance: USTEKINUMAB
     Indication: Crohn^s disease
     Dates: start: 20230228, end: 20230228

REACTIONS (7)
  - Flushing [None]
  - Dyspnoea [None]
  - Blood pressure increased [None]
  - Infusion related reaction [None]
  - Pain in extremity [None]
  - Chest pain [None]
  - Dysgeusia [None]

NARRATIVE: CASE EVENT DATE: 20230228
